FAERS Safety Report 7017047-1 (Version None)
Quarter: 2010Q3

REPORT INFORMATION
  Report Type: 
  Country: None (occurrence: None)
  Receive Date: 20100927
  Receipt Date: 20100921
  Transmission Date: 20110219
  Serious: No
  Sender: FDA-Public Use
  Company Number: US-PFIZER INC-2010120080

PATIENT
  Sex: Female

DRUGS (1)
  1. CLEOCIN [Suspect]
     Dosage: 600 MG, UNK
     Route: 042
     Dates: start: 20100721, end: 20100721

REACTIONS (1)
  - RASH [None]
